FAERS Safety Report 8884104 (Version 2)
Quarter: 2013Q1

REPORT INFORMATION
  Report Type: Spontaneous
  Country: US (occurrence: US)
  Receive Date: 20121102
  Receipt Date: 20130124
  Transmission Date: 20140127
  Serious: Yes (Hospitalization)
  Sender: FDA-Public Use
  Company Number: US-ELI_LILLY_AND_COMPANY-US201109004304

PATIENT
  Age: 56 Year
  Sex: Female

DRUGS (6)
  1. FORTEO [Suspect]
     Dosage: 20 UG, QD
     Route: 058
     Dates: start: 201106
  2. FORTEO [Suspect]
     Dosage: 20 UG, QD
     Route: 058
  3. LASIX [Concomitant]
     Indication: SWELLING
     Dosage: 40 G, QD
  4. MTX [Concomitant]
     Dosage: 20 G, UNK
  5. PLAQUENIL [Concomitant]
     Dosage: 20 G, QD
  6. AMLODIPINE [Concomitant]
     Dosage: 2.5 G, QD

REACTIONS (4)
  - Chest pain [Recovered/Resolved]
  - Dyspnoea [Recovered/Resolved]
  - Anxiety [Recovered/Resolved]
  - Medication error [Unknown]
